FAERS Safety Report 22524528 (Version 5)
Quarter: 2025Q4

REPORT INFORMATION
  Report Type: Report from Study
  Country: US (occurrence: US)
  Receive Date: 20230606
  Receipt Date: 20251010
  Transmission Date: 20260118
  Serious: Yes (Hospitalization)
  Sender: TAKEDA
  Company Number: US-TAKEDA-2021TUS033655

PATIENT
  Age: 47 Year
  Sex: Female

DRUGS (3)
  1. HUMAN IMMUNOGLOBULIN G [Suspect]
     Active Substance: HUMAN IMMUNOGLOBULIN G
     Indication: Immunodeficiency
     Dosage: UNK
  2. CUVITRU [Suspect]
     Active Substance: HUMAN IMMUNOGLOBULIN G
     Indication: Primary immunodeficiency syndrome
     Dosage: UNK
  3. CUVITRU [Suspect]
     Active Substance: HUMAN IMMUNOGLOBULIN G
     Indication: Immunodeficiency

REACTIONS (27)
  - Respiratory syncytial virus infection [Unknown]
  - Oral herpes [Unknown]
  - Energy increased [Unknown]
  - Muscle strain [Unknown]
  - Neck pain [Unknown]
  - Sleep disorder [Unknown]
  - Rash vesicular [Unknown]
  - Rotator cuff syndrome [Unknown]
  - Muscle strain [Unknown]
  - Vein disorder [Unknown]
  - Incorrect drug administration rate [Unknown]
  - COVID-19 [Recovering/Resolving]
  - Illness [Unknown]
  - Streptococcal infection [Recovering/Resolving]
  - Malaise [Unknown]
  - Abdominal pain upper [Unknown]
  - Back pain [Unknown]
  - Muscle spasms [Unknown]
  - Infusion site swelling [Unknown]
  - Pyrexia [Unknown]
  - Migraine [Unknown]
  - Headache [Unknown]
  - Nausea [Unknown]
  - Fatigue [Unknown]
  - Influenza [Recovering/Resolving]
  - Urticaria [Unknown]
  - Oropharyngeal pain [Not Recovered/Not Resolved]
